FAERS Safety Report 20920574 (Version 1)
Quarter: 2022Q2

REPORT INFORMATION
  Report Type: Spontaneous
  Country: US (occurrence: None)
  Receive Date: 20220606
  Receipt Date: 20220606
  Transmission Date: 20220720
  Serious: No
  Sender: FDA-Public Use
  Company Number: None

PATIENT
  Age: 72 Year
  Sex: Male
  Weight: 171.4 kg

DRUGS (15)
  1. ABIRATERONE [Suspect]
     Active Substance: ABIRATERONE
     Indication: Prostate cancer
     Dosage: FREQUENCY : DAILY;?
     Route: 048
     Dates: start: 20210312
  2. AMOXICILLIN [Concomitant]
     Active Substance: AMOXICILLIN
  3. BICALUTAMIDE [Concomitant]
     Active Substance: BICALUTAMIDE
  4. CALCITIROL [Concomitant]
  5. CALCIUM\VITAMIN D [Concomitant]
     Active Substance: CALCIUM\VITAMIN D
  6. DILTIAZEM [Concomitant]
     Active Substance: DILTIAZEM
  7. LOTRIMIN [Concomitant]
     Active Substance: CLOTRIMAZOLE
  8. LURPON [Concomitant]
  9. METOPROLOL [Concomitant]
     Active Substance: METOPROLOL
  10. METOPROLOL [Concomitant]
     Active Substance: METOPROLOL
  11. MUPIROCIN [Concomitant]
     Active Substance: MUPIROCIN
  12. PANTOPRAZOLE [Concomitant]
     Active Substance: PANTOPRAZOLE
  13. TAMSULOSIN [Concomitant]
     Active Substance: TAMSULOSIN
  14. XGEVA [Concomitant]
     Active Substance: DENOSUMAB
  15. ZOMETA [Concomitant]
     Active Substance: ZOLEDRONIC ACID

REACTIONS (1)
  - Death [None]
